FAERS Safety Report 18986831 (Version 1)
Quarter: 2021Q1

REPORT INFORMATION
  Report Type: Spontaneous
  Country: US (occurrence: US)
  Receive Date: 20210309
  Receipt Date: 20210309
  Transmission Date: 20210420
  Serious: No
  Sender: FDA-Public Use
  Company Number: US-TAKEDA-2021TUS015178

PATIENT
  Age: 67 Year
  Sex: Male

DRUGS (4)
  1. GABAPENTIN. [Concomitant]
     Active Substance: GABAPENTIN
  2. ALPHA LIPOIC [Concomitant]
  3. REVLIMID [Concomitant]
     Active Substance: LENALIDOMIDE
  4. NINLARO [Suspect]
     Active Substance: IXAZOMIB CITRATE
     Indication: PLASMA CELL MYELOMA
     Dosage: 4 MILLIGRAM
     Route: 048
     Dates: start: 20201121

REACTIONS (1)
  - Laboratory test abnormal [Unknown]

NARRATIVE: CASE EVENT DATE: 202102
